FAERS Safety Report 10244645 (Version 1)
Quarter: 2014Q2

REPORT INFORMATION
  Report Type: Spontaneous
  Country: GB (occurrence: GB)
  Receive Date: 20140618
  Receipt Date: 20140618
  Transmission Date: 20141212
  Serious: Yes (Disabling, Other)
  Sender: FDA-Public Use
  Company Number: PHHY2014GB071687

PATIENT
  Age: 75 Year
  Sex: Male
  Weight: 68 kg

DRUGS (9)
  1. ATORVASTATIN [Suspect]
     Indication: FAMILIAL RISK FACTOR
     Dosage: 20 MG, UNK
     Route: 048
     Dates: start: 201404, end: 201405
  2. SIMVASTATIN [Suspect]
     Indication: FAMILIAL RISK FACTOR
     Dosage: 40 MG, UNK
     Route: 048
     Dates: start: 200801, end: 201405
  3. ATENOLOL [Concomitant]
  4. AMOROLFINE HYDROCHLORIDE [Concomitant]
  5. CLOPIDOGREL [Concomitant]
  6. FLUOROURACIL [Concomitant]
  7. HYDROXYCARBAMIDE [Concomitant]
  8. LISINOPRIL [Concomitant]
  9. NAPROXEN [Concomitant]

REACTIONS (4)
  - Musculoskeletal pain [Recovering/Resolving]
  - Pain in extremity [Recovering/Resolving]
  - Periarthritis [Recovering/Resolving]
  - Pain [Recovering/Resolving]
